FAERS Safety Report 16894981 (Version 1)
Quarter: 2019Q4

REPORT INFORMATION
  Report Type: Spontaneous
  Country: US (occurrence: US)
  Receive Date: 20191007
  Receipt Date: 20191007
  Transmission Date: 20200122
  Serious: No
  Sender: FDA-Public Use
  Company Number: None

PATIENT
  Age: 55 Year
  Sex: Female
  Weight: 70.2 kg

DRUGS (7)
  1. MYRBETRIQ [Suspect]
     Active Substance: MIRABEGRON
     Indication: URINARY INCONTINENCE
     Dosage: ?          QUANTITY:1 TABLET(S);?
     Route: 048
     Dates: start: 20190710, end: 20190710
  2. ATORVASTATIN [Concomitant]
     Active Substance: ATORVASTATIN
  3. ZOLOFT [Concomitant]
     Active Substance: SERTRALINE HYDROCHLORIDE
  4. METFORMIN [Concomitant]
     Active Substance: METFORMIN HYDROCHLORIDE
  5. EZETIMIBE. [Concomitant]
     Active Substance: EZETIMIBE
  6. ATENOLOL. [Concomitant]
     Active Substance: ATENOLOL
  7. MELATONIN [Concomitant]
     Active Substance: MELATONIN

REACTIONS (2)
  - Musculoskeletal stiffness [None]
  - Back pain [None]

NARRATIVE: CASE EVENT DATE: 20190720
